FAERS Safety Report 4514961-3 (Version None)
Quarter: 2004Q4

REPORT INFORMATION
  Report Type: 
  Country: None (occurrence: None)
  Receive Date: 20041129
  Receipt Date: 20041129
  Transmission Date: 20050328
  Serious: Yes (Life-Threatening, Disabling)
  Sender: FDA-Public Use
  Company Number: None

PATIENT
  Age: 60 Year
  Sex: Male
  Weight: 74.8435 kg

DRUGS (14)
  1. LIPITOR [Suspect]
     Indication: BLOOD CHOLESTEROL INCREASED
     Dosage: 10 MGM   ONCE PER DAY   ORAL
     Route: 048
     Dates: start: 20000505, end: 20040725
  2. LIPITOR [Suspect]
     Indication: LOW DENSITY LIPOPROTEIN INCREASED
     Dosage: 10 MGM   ONCE PER DAY   ORAL
     Route: 048
     Dates: start: 20000505, end: 20040725
  3. COENZYME Q10 [Concomitant]
  4. MG OROTATE [Concomitant]
  5. R-ALPHA LIPOIC ACID [Concomitant]
  6. L-CARNITINE [Concomitant]
  7. CIRCUMIN [Concomitant]
  8. BIOTIN [Concomitant]
  9. VIT B 1 [Concomitant]
  10. VITA B 12 [Concomitant]
  11. CA [Concomitant]
  12. VIT D [Concomitant]
  13. ADP CHOLINE [Concomitant]
  14. FISH OIL [Concomitant]

REACTIONS (6)
  - BRADYKINESIA [None]
  - FLAT AFFECT [None]
  - GAIT DISTURBANCE [None]
  - MOVEMENT DISORDER [None]
  - STARING [None]
  - TREMOR [None]
